FAERS Safety Report 21518926 (Version 4)
Quarter: 2023Q1

REPORT INFORMATION
  Report Type: Report from Study
  Country: US (occurrence: US)
  Receive Date: 20221028
  Receipt Date: 20230329
  Transmission Date: 20230418
  Serious: Yes (Other)
  Sender: FDA-Public Use
  Company Number: US-ABBVIE-4176980

PATIENT
  Sex: Male

DRUGS (2)
  1. HUMIRA [Suspect]
     Active Substance: ADALIMUMAB
     Indication: Rheumatoid arthritis
     Dosage: FORM STRENGTH: 40 MILLIGRAM?CF
     Route: 058
     Dates: start: 20200603
  2. HUMIRA [Suspect]
     Active Substance: ADALIMUMAB
     Dosage: FORM STRENGTH: 40 MILLIGRAM?CF
     Route: 058

REACTIONS (5)
  - Intervertebral disc degeneration [Unknown]
  - Spinal operation [Unknown]
  - Contusion [Unknown]
  - Spinal fusion acquired [Unknown]
  - Contusion [Unknown]

NARRATIVE: CASE EVENT DATE: 20230101
